FAERS Safety Report 4583424-1 (Version None)
Quarter: 2005Q1

REPORT INFORMATION
  Report Type: 
  Country: None (occurrence: None)
  Receive Date: 20050211
  Receipt Date: 20050131
  Transmission Date: 20050727
  Serious: Yes (Death)
  Sender: FDA-Public Use
  Company Number: 2005011971

PATIENT
  Age: 77 Year
  Sex: Female
  Weight: 79 kg

DRUGS (5)
  1. GENOTROPIN [Suspect]
     Indication: HYPOPITUITARISM
     Dosage: 0.1 MG (0.3 MG/M2, 1 IN 1 D), SUBCUTANEOUS
     Route: 058
     Dates: start: 20040312
  2. LEVOTHYROXINE SODIUM [Concomitant]
  3. CORTISONE (CORTISONE) [Concomitant]
  4. DYTA-URESE(EPITIZIDE, TRIAMTEREN) [Concomitant]
  5. VASARTAN (VALSARTAN) [Concomitant]

REACTIONS (1)
  - SUDDEN DEATH [None]
